FAERS Safety Report 5724995-9 (Version None)
Quarter: 2008Q2

REPORT INFORMATION
  Report Type: 
  Country: None (occurrence: None)
  Receive Date: 20080430
  Receipt Date: 20080430
  Transmission Date: 20081010
  Serious: Yes (Other)
  Sender: FDA-Public Use
  Company Number: None

PATIENT
  Age: 84 Year
  Sex: Male
  Weight: 77.5651 kg

DRUGS (1)
  1. CARVEDILOL [Suspect]
     Indication: ISCHAEMIC CARDIOMYOPATHY
     Dosage: 1/2 TABLET TWICE A DAY PO
     Route: 048
     Dates: start: 20080101, end: 20080427

REACTIONS (3)
  - DIZZINESS [None]
  - HYPOTENSION [None]
  - PHARMACEUTICAL PRODUCT COMPLAINT [None]
